FAERS Safety Report 10540492 (Version 1)
Quarter: 2014Q4

REPORT INFORMATION
  Report Type: Spontaneous
  Country: US (occurrence: US)
  Receive Date: 20141024
  Receipt Date: 20141024
  Transmission Date: 20150529
  Serious: Yes (Other)
  Sender: FDA-Public Use
  Company Number: US-AMGEN-USASP2014080835

PATIENT
  Age: 54 Year
  Sex: Female

DRUGS (1)
  1. PROLIA [Suspect]
     Active Substance: DENOSUMAB
     Indication: PRODUCT USED FOR UNKNOWN INDICATION
     Dosage: UNK
     Route: 065

REACTIONS (14)
  - Bacterial vaginosis [Unknown]
  - Blood calcium decreased [Unknown]
  - Serology abnormal [Unknown]
  - Endodontic procedure [Unknown]
  - Myalgia [Unknown]
  - Hypoaesthesia [Unknown]
  - Urinary tract infection [Unknown]
  - Impaired healing [Unknown]
  - Tooth infection [Unknown]
  - Paraesthesia [Unknown]
  - Myasthenia gravis [Unknown]
  - Asthenia [Unknown]
  - Fungal infection [Unknown]
  - Tooth disorder [Unknown]

NARRATIVE: CASE EVENT DATE: 2013
